FAERS Safety Report 5084253-5 (Version None)
Quarter: 2006Q3

REPORT INFORMATION
  Report Type: 
  Country: None (occurrence: None)
  Receive Date: 20060821
  Receipt Date: 20060517
  Transmission Date: 20061208
  Serious: No
  Sender: FDA-Public Use
  Company Number: US-BRISTOL-MYERS SQUIBB COMPANY-13380415

PATIENT
  Age: 79 Year
  Sex: Female

DRUGS (1)
  1. TEQUIN [Suspect]
     Dates: start: 20060412, end: 20060413

REACTIONS (1)
  - ADVERSE DRUG REACTION [None]
